FAERS Safety Report 26105919 (Version 1)
Quarter: 2025Q4

REPORT INFORMATION
  Report Type: Spontaneous
  Country: CA (occurrence: CA)
  Receive Date: 20251201
  Receipt Date: 20251201
  Transmission Date: 20260117
  Serious: Yes (Other)
  Sender: TEVA
  Company Number: CA-TEVA-VS-3393141

PATIENT
  Age: 58 Year
  Sex: Female

DRUGS (7)
  1. BISOPROLOL [Suspect]
     Active Substance: BISOPROLOL
     Indication: Product used for unknown indication
     Route: 065
  2. SODIUM NITROPRUSSIDE [Concomitant]
     Active Substance: SODIUM NITROPRUSSIDE
     Indication: Increased ventricular afterload
     Dosage: DOSE FORM: POWDER FOR SOLUTION INTRAVENOUS
     Route: 042
  3. DAPAGLIFLOZIN [Suspect]
     Active Substance: DAPAGLIFLOZIN
     Indication: Heart transplant
     Dosage: DOSE FORM: NOT SPECIFIED
     Route: 065
  4. SACUBITRIL\VALSARTAN [Suspect]
     Active Substance: SACUBITRIL\VALSARTAN
     Indication: Product used for unknown indication
     Route: 065
  5. MILRINONE [Concomitant]
     Active Substance: MILRINONE
     Indication: Increased ventricular afterload
     Route: 065
  6. HYDRALAZINE [Concomitant]
     Active Substance: HYDRALAZINE HYDROCHLORIDE
     Indication: Increased ventricular afterload
     Route: 048
  7. DAPAGLIFLOZIN [Suspect]
     Active Substance: DAPAGLIFLOZIN
     Indication: Product used for unknown indication
     Route: 065

REACTIONS (2)
  - Urinary tract infection [Unknown]
  - Drug intolerance [Unknown]
